FAERS Safety Report 13255374 (Version 8)
Quarter: 2018Q2

REPORT INFORMATION
  Report Type: Report from Study
  Country: JP (occurrence: JP)
  Receive Date: 20170221
  Receipt Date: 20180424
  Transmission Date: 20180711
  Serious: Yes (Death, Hospitalization, Other)
  Sender: FDA-Public Use
  Company Number: JP-ASTELLAS-2017JP002924

PATIENT
  Age: 85 Year
  Sex: Male

DRUGS (48)
  1. FAMOTIDINE DCI [Concomitant]
     Active Substance: FAMOTIDINE
     Indication: GASTROOESOPHAGEAL REFLUX DISEASE
     Route: 048
  2. SLONNON HI [Concomitant]
     Active Substance: ARGATROBAN
     Route: 065
     Dates: start: 20160206, end: 20160210
  3. LASIX [Concomitant]
     Active Substance: FUROSEMIDE
     Indication: ESSENTIAL HYPERTENSION
     Route: 048
     Dates: end: 20160531
  4. FUROSEMIDE. [Concomitant]
     Active Substance: FUROSEMIDE
     Indication: ESSENTIAL HYPERTENSION
     Route: 048
     Dates: start: 20160601
  5. DIGILANOGEN C                      /00007201/ [Concomitant]
     Indication: ATRIAL FIBRILLATION
     Dosage: 0.2 MG, ONCE DAILY
     Route: 065
     Dates: start: 20160613, end: 20160614
  6. AVAPRO [Concomitant]
     Active Substance: IRBESARTAN
     Indication: ESSENTIAL HYPERTENSION
     Route: 048
     Dates: end: 20160203
  7. VITAMEDIN                          /00176001/ [Concomitant]
     Indication: ADVERSE EVENT
     Dosage: 1 BOTTLE, TWICE DAILY
     Route: 065
     Dates: start: 20160204, end: 20160206
  8. LOCHOL                             /01224502/ [Concomitant]
     Active Substance: FLUVASTATIN SODIUM
     Indication: DYSLIPIDAEMIA
     Route: 048
     Dates: end: 20160711
  9. AMLODIPINE [Concomitant]
     Active Substance: AMLODIPINE BESYLATE
     Route: 048
     Dates: start: 20160615
  10. NICARDIPINE [Concomitant]
     Active Substance: NICARDIPINE
     Indication: SUBDURAL HAEMATOMA
     Route: 065
     Dates: start: 20160613, end: 20160614
  11. KAYTWO N [Concomitant]
     Active Substance: MENATETRENONE
     Indication: SUBDURAL HAEMATOMA
     Route: 042
     Dates: start: 20160613, end: 20160614
  12. METOCLOPRAMIDE. [Concomitant]
     Active Substance: METOCLOPRAMIDE
     Indication: PROPHYLAXIS
     Route: 065
     Dates: start: 20160613, end: 20160614
  13. GLUACETO 35 [Concomitant]
     Indication: SUBDURAL HAEMATOMA
     Route: 065
     Dates: start: 20160615, end: 20160622
  14. WARFARIN                           /00014803/ [Concomitant]
     Active Substance: WARFARIN
     Indication: ADVERSE EVENT
     Route: 048
     Dates: start: 20160627, end: 20160706
  15. MUCOSAL                            /00546002/ [Concomitant]
     Indication: SPUTUM RETENTION
     Route: 048
  16. SULBACILLIN [Concomitant]
     Active Substance: AMPICILLIN SODIUM\SULBACTAM SODIUM
     Indication: C-REACTIVE PROTEIN INCREASED
     Route: 065
     Dates: start: 20160209, end: 20160212
  17. FUROSEMIDE. [Concomitant]
     Active Substance: FUROSEMIDE
     Indication: CARDIAC FAILURE CHRONIC
     Route: 048
  18. FOSMICIN                           /00552502/ [Concomitant]
     Active Substance: FOSFOMYCIN CALCIUM
     Indication: PROPHYLAXIS
     Route: 048
     Dates: start: 20160621, end: 20160628
  19. ENZALUTAMIDE [Suspect]
     Active Substance: ENZALUTAMIDE
     Indication: HORMONE-REFRACTORY PROSTATE CANCER
     Route: 048
     Dates: start: 20151222
  20. CELECOX [Concomitant]
     Active Substance: CELECOXIB
     Indication: CHONDROCALCINOSIS PYROPHOSPHATE
     Route: 048
     Dates: start: 20160208, end: 20160225
  21. SENNOSIDE                          /00571901/ [Concomitant]
     Active Substance: SENNOSIDES A AND B
     Route: 048
     Dates: start: 2016
  22. SLONNON HI [Concomitant]
     Active Substance: ARGATROBAN
     Indication: THROMBOTIC CEREBRAL INFARCTION
     Route: 065
     Dates: start: 20160204, end: 20160205
  23. EDARAVONE [Concomitant]
     Active Substance: EDARAVONE
     Indication: THROMBOTIC CEREBRAL INFARCTION
     Route: 041
     Dates: start: 20160204, end: 20160216
  24. SULBACILLIN [Concomitant]
     Active Substance: AMPICILLIN SODIUM\SULBACTAM SODIUM
     Indication: WHITE BLOOD CELL COUNT INCREASED
  25. PRAVASTATIN                        /00880402/ [Concomitant]
     Active Substance: PRAVASTATIN SODIUM
     Indication: DYSLIPIDAEMIA
     Route: 048
  26. LANIRAPID [Concomitant]
     Active Substance: METILDIGOXIN
     Indication: CARDIAC FAILURE CHRONIC
     Dosage: 0.05 MG, ONCE DAILY
     Route: 048
     Dates: end: 20160622
  27. CARBAZOCHROME SODIUM SULFONATE [Concomitant]
     Active Substance: CARBAZOCHROME SODIUM SULFONATE
     Indication: SUBDURAL HAEMATOMA
     Route: 065
     Dates: start: 20160613, end: 20160614
  28. SODIUM CHLORIDE. [Concomitant]
     Active Substance: SODIUM CHLORIDE
     Indication: SUBDURAL HAEMATOMA
     Dosage: 2.5 MEQ/ML, ONCE DAILY
     Route: 065
     Dates: start: 20160621, end: 20160627
  29. WARFARIN                           /00014803/ [Concomitant]
     Active Substance: WARFARIN
     Indication: ATRIAL FIBRILLATION
     Route: 048
     Dates: start: 20160918, end: 20160920
  30. WARFARIN                           /00014803/ [Concomitant]
     Active Substance: WARFARIN
     Route: 048
     Dates: start: 20161209, end: 20161217
  31. WARFARIN                           /00014803/ [Concomitant]
     Active Substance: WARFARIN
     Dosage: UNK UNK, UNKNOWN FREQ.
     Route: 048
     Dates: start: 201709
  32. MS REISHIPPU [Concomitant]
     Active Substance: CAMPHOR\MENTHOL\METHYL SALICYLATE
     Indication: CHONDROCALCINOSIS PYROPHOSPHATE
     Dosage: UNK UNK, UNKNOWN FREQ.
     Route: 061
     Dates: start: 20160207, end: 20160211
  33. SULBACILLIN [Concomitant]
     Active Substance: AMPICILLIN SODIUM\SULBACTAM SODIUM
     Indication: PYREXIA
  34. SOLITA-T1 [Concomitant]
     Indication: THROMBOTIC CEREBRAL INFARCTION
     Route: 065
     Dates: start: 20160204, end: 20160210
  35. AMLODIPINE [Concomitant]
     Active Substance: AMLODIPINE BESYLATE
     Indication: ESSENTIAL HYPERTENSION
     Route: 048
     Dates: end: 20160203
  36. CARBAZOCHROME SODIUM SULFONATE [Concomitant]
     Active Substance: CARBAZOCHROME SODIUM SULFONATE
     Indication: HAEMATOCHEZIA
     Route: 065
     Dates: start: 20170918, end: 20170920
  37. SENNOSIDE                          /00571901/ [Concomitant]
     Active Substance: SENNOSIDES A AND B
     Indication: CONSTIPATION
     Route: 048
  38. KAYTWO N [Concomitant]
     Active Substance: MENATETRENONE
     Indication: PROCTALGIA
     Route: 042
     Dates: start: 20171011, end: 20171011
  39. SOLITA-T3 [Concomitant]
     Active Substance: POTASSIUM CHLORIDE\SODIUM CHLORIDE\SODIUM LACTATE
     Indication: HAEMATOCHEZIA
     Route: 065
     Dates: start: 20170919, end: 20170921
  40. BAYASPIRIN [Concomitant]
     Active Substance: ASPIRIN
     Indication: PROPHYLAXIS
     Route: 048
     Dates: start: 20160223
  41. VITAMEDIN                          /00176001/ [Concomitant]
     Indication: HAEMATOCHEZIA
     Route: 065
     Dates: start: 20170918, end: 20170920
  42. MAGNESIUM OXIDE. [Concomitant]
     Active Substance: MAGNESIUM OXIDE
     Indication: CONSTIPATION
     Route: 048
  43. LOXOPROFEN                         /00890702/ [Concomitant]
     Active Substance: LOXOPROFEN
     Indication: PERIARTHRITIS
     Route: 048
     Dates: start: 20160617, end: 20160630
  44. WARFARIN                           /00014803/ [Concomitant]
     Active Substance: WARFARIN
     Route: 048
     Dates: start: 20161221, end: 201709
  45. FLUVASTATIN                        /01224502/ [Concomitant]
     Active Substance: FLUVASTATIN SODIUM
     Indication: DYSLIPIDAEMIA
     Route: 048
     Dates: start: 20160712
  46. CARBOCISTEINE [Concomitant]
     Active Substance: CARBOCYSTEINE
     Indication: SPUTUM RETENTION
     Route: 048
  47. MS REISHIPPU [Concomitant]
     Active Substance: CAMPHOR\MENTHOL\METHYL SALICYLATE
     Indication: PERIARTHRITIS
     Dosage: UNK UNK, UNKNOWN FREQ.
     Route: 061
     Dates: start: 20160629, end: 20160703
  48. ALLOPURINOL. [Concomitant]
     Active Substance: ALLOPURINOL
     Indication: HYPERURICAEMIA
     Route: 048

REACTIONS (13)
  - C-reactive protein increased [Recovered/Resolved]
  - Chondrocalcinosis pyrophosphate [Recovered/Resolved]
  - Subdural haematoma [Recovering/Resolving]
  - Prescribed underdose [Unknown]
  - Thrombotic cerebral infarction [Recovering/Resolving]
  - Pyrexia [Recovered/Resolved]
  - Atrial fibrillation [Recovering/Resolving]
  - Haematochezia [Recovering/Resolving]
  - Large intestine polyp [Not Recovered/Not Resolved]
  - Proctalgia [Unknown]
  - Periarthritis [Recovered/Resolved]
  - Pancreatic carcinoma [Fatal]
  - White blood cell count increased [Recovered/Resolved]

NARRATIVE: CASE EVENT DATE: 20151222
